FAERS Safety Report 9706500 (Version 4)
Quarter: 2013Q4

REPORT INFORMATION
  Report Type: Report from Study
  Country: US (occurrence: US)
  Receive Date: 20131125
  Receipt Date: 20131205
  Transmission Date: 20140711
  Serious: Yes (Other)
  Sender: FDA-Public Use
  Company Number: US-ROCHE-1303209

PATIENT
  Age: 39 Year
  Sex: Female
  Weight: 58.97 kg

DRUGS (6)
  1. XOLAIR [Suspect]
     Indication: ASTHMA
     Route: 058
     Dates: start: 20131030
  2. XOLAIR [Suspect]
     Route: 058
     Dates: start: 20131119
  3. SINGULAIR [Concomitant]
     Route: 065
  4. ADVAIR [Concomitant]
     Dosage: 115/21 2 PUFFS
     Route: 055
     Dates: start: 20130730
  5. TOPAMAX [Concomitant]
  6. AMBIEN [Concomitant]

REACTIONS (1)
  - Anaphylactic reaction [Recovered/Resolved]
